FAERS Safety Report 6104630-0 (Version None)
Quarter: 2009Q1

REPORT INFORMATION
  Report Type: 
  Country: None (occurrence: None)
  Receive Date: 20090303
  Receipt Date: 20090220
  Transmission Date: 20090719
  Serious: Yes (Hospitalization)
  Sender: FDA-Public Use
  Company Number: 118168

PATIENT
  Age: 65 Year
  Sex: Female
  Weight: 122.4712 kg

DRUGS (8)
  1. SENNA LEXATIVE / PERRIGO COMPANY [Suspect]
     Dosage: ONE TABLET / ONCE A MONTH / ORAL
     Route: 048
  2. LASIX [Concomitant]
  3. LENTE INSULIN [Concomitant]
  4. CLONIDINE HCL [Concomitant]
  5. AVALIDE [Concomitant]
  6. GLUCOPHAGE [Concomitant]
  7. ASPIRIN [Concomitant]
  8. UNSPECIFIED ORAL MEDICATION FOR DIABETES [Concomitant]

REACTIONS (3)
  - BLOOD DISORDER [None]
  - CARDIAC FIBRILLATION [None]
  - WHEEZING [None]
